FAERS Safety Report 6509226-4 (Version None)
Quarter: 2009Q4

REPORT INFORMATION
  Report Type: 
  Country: None (occurrence: None)
  Receive Date: 20091221
  Receipt Date: 20091207
  Transmission Date: 20100525
  Serious: Yes (Other)
  Sender: FDA-Public Use
  Company Number: DE-MYLANLABS-2009S1021089

PATIENT
  Age: 20 Year
  Sex: Female
  Weight: 54 kg

DRUGS (3)
  1. SERTRALINE HCL [Suspect]
     Indication: DEPRESSION
     Route: 048
     Dates: start: 20090911, end: 20090916
  2. SERTRALINE HCL [Suspect]
     Route: 048
     Dates: start: 20090917, end: 20090928
  3. SERTRALINE HCL [Suspect]
     Route: 048
     Dates: start: 20090929, end: 20091005

REACTIONS (2)
  - MYOCLONUS [None]
  - TREMOR [None]
